FAERS Safety Report 7747553-3 (Version None)
Quarter: 2011Q3

REPORT INFORMATION
  Report Type: 
  Country: None (occurrence: None)
  Receive Date: 20110909
  Receipt Date: 20110826
  Transmission Date: 20111222
  Serious: Yes (Death)
  Sender: FDA-Public Use
  Company Number: 2011S1000289

PATIENT
  Sex: Male

DRUGS (2)
  1. INOMAX [Suspect]
     Indication: PULMONARY HYPERTENSION
     Dosage: 20 PPM;CONT;INH
     Route: 055
     Dates: start: 20110826, end: 20110826
  2. INOVENT (DELIVERY SYSTEM) [Suspect]

REACTIONS (3)
  - RESPIRATORY FAILURE [None]
  - CARDIAC ARREST [None]
  - DEVICE MALFUNCTION [None]
